FAERS Safety Report 20387782 (Version 1)
Quarter: 2022Q1

REPORT INFORMATION
  Report Type: Spontaneous
  Country: CA (occurrence: CA)
  Receive Date: 20220127
  Receipt Date: 20220127
  Transmission Date: 20220423
  Serious: Yes (Hospitalization, Other)
  Sender: FDA-Public Use
  Company Number: CA-JNJFOC-20220141211

PATIENT
  Age: 42 Year
  Sex: Female

DRUGS (2)
  1. REMICADE [Suspect]
     Active Substance: INFLIXIMAB
     Indication: Metastatic malignant melanoma
     Route: 042
  2. PREDNISONE [Concomitant]
     Active Substance: PREDNISONE

REACTIONS (12)
  - Haemorrhage [Not Recovered/Not Resolved]
  - Immune-mediated enterocolitis [Not Recovered/Not Resolved]
  - Colitis [Not Recovered/Not Resolved]
  - Cystitis noninfective [Not Recovered/Not Resolved]
  - Micturition urgency [Not Recovered/Not Resolved]
  - Poor venous access [Not Recovered/Not Resolved]
  - Cystitis [Not Recovered/Not Resolved]
  - Anaemia [Not Recovered/Not Resolved]
  - Haemoglobin decreased [Not Recovered/Not Resolved]
  - Urinary tract infection [Not Recovered/Not Resolved]
  - Off label use [Not Recovered/Not Resolved]
  - Product use in unapproved indication [Not Recovered/Not Resolved]
